FAERS Safety Report 9117929 (Version 2)
Quarter: 2013Q2

REPORT INFORMATION
  Report Type: Report from Study
  Country: US (occurrence: US)
  Receive Date: 20130225
  Receipt Date: 20130410
  Transmission Date: 20140414
  Serious: Yes (Other)
  Sender: FDA-Public Use
  Company Number: US-ABBOTT-13P-163-1051932-00

PATIENT
  Sex: Female

DRUGS (7)
  1. HUMIRA [Suspect]
     Indication: ANKYLOSING SPONDYLITIS
  2. GEMFIBROZIL [Concomitant]
     Indication: PRODUCT USED FOR UNKNOWN INDICATION
  3. GLYBURIDE/METFORMIN [Concomitant]
     Indication: PRODUCT USED FOR UNKNOWN INDICATION
     Dosage: 5/500MG, TWICE DAILY
  4. ATENOLOL/CHLOR [Concomitant]
     Indication: PRODUCT USED FOR UNKNOWN INDICATION
     Dosage: 100-25MG DAILY
  5. CALCIUM + VIT D [Concomitant]
     Indication: PRODUCT USED FOR UNKNOWN INDICATION
  6. CELEBREX [Concomitant]
     Indication: PRODUCT USED FOR UNKNOWN INDICATION
  7. BENAZEPRIL [Concomitant]
     Indication: PRODUCT USED FOR UNKNOWN INDICATION

REACTIONS (8)
  - Exostosis [Unknown]
  - Tendon injury [Unknown]
  - Onychomycosis [Unknown]
  - Wisdom teeth removal [Unknown]
  - Procedural pain [Unknown]
  - Urine analysis abnormal [Unknown]
  - Skin test positive [Unknown]
  - Cystitis interstitial [Unknown]
